FAERS Safety Report 15108903 (Version 1)
Quarter: 2018Q3

REPORT INFORMATION
  Report Type: Spontaneous
  Country: US (occurrence: US)
  Receive Date: 20180705
  Receipt Date: 20180705
  Transmission Date: 20181010
  Serious: No
  Sender: FDA-Public Use
  Company Number: US-TEVA-790941ACC

PATIENT
  Sex: Male

DRUGS (2)
  1. LEVOFLOXACIN TABLETS, 250 MG, 500 MG AND 750 MG [Suspect]
     Active Substance: LEVOFLOXACIN
     Indication: BRONCHITIS
     Dosage: 1 DOSAGE FORMS DAILY;
     Dates: start: 20170711, end: 20170714
  2. LEVOFLOXACIN TABLETS, 250 MG, 500 MG AND 750 MG [Interacting]
     Active Substance: LEVOFLOXACIN
     Indication: SINUSITIS

REACTIONS (8)
  - Tremor [Recovered/Resolved]
  - Drug interaction [Recovered/Resolved]
  - Hypoaesthesia [Recovered/Resolved]
  - Paraesthesia [Recovered/Resolved]
  - Arthralgia [Recovered/Resolved]
  - Tendon disorder [Recovered/Resolved]
  - Pain in extremity [Recovered/Resolved]
  - Limb discomfort [Recovered/Resolved]

NARRATIVE: CASE EVENT DATE: 201707
